FAERS Safety Report 17682308 (Version 5)
Quarter: 2020Q4

REPORT INFORMATION
  Report Type: Spontaneous
  Country: US (occurrence: US)
  Receive Date: 20200418
  Receipt Date: 20201012
  Transmission Date: 20210113
  Serious: No
  Sender: FDA-Public Use
  Company Number: US-GLAXOSMITHKLINE-US2020AMR065970

PATIENT
  Sex: Female

DRUGS (4)
  1. ZEJULA [Suspect]
     Active Substance: NIRAPARIB
     Indication: OVARIAN CANCER
     Dosage: 200 MG, DAILY
     Dates: start: 20200316
  2. ZEJULA [Suspect]
     Active Substance: NIRAPARIB
     Dosage: 200 MG, DAILY (QPM WITHOUT FOOD)
  3. ZEJULA [Suspect]
     Active Substance: NIRAPARIB
     Dosage: 200 MG, QD
  4. ZEJULA [Suspect]
     Active Substance: NIRAPARIB
     Dosage: 200 MG, QD

REACTIONS (8)
  - Underdose [Unknown]
  - Hyperhidrosis [Unknown]
  - Drug ineffective [Unknown]
  - Night sweats [Unknown]
  - Constipation [Not Recovered/Not Resolved]
  - Neck pain [Unknown]
  - Fatigue [Recovering/Resolving]
  - Headache [Unknown]
